FAERS Safety Report 9672265 (Version 1)
Quarter: 2013Q4

REPORT INFORMATION
  Report Type: Spontaneous
  Country: US (occurrence: US)
  Receive Date: 20131106
  Receipt Date: 20131106
  Transmission Date: 20140711
  Serious: No
  Sender: FDA-Public Use
  Company Number: US-TEVA-442685USA

PATIENT
  Sex: Male
  Weight: 39.95 kg

DRUGS (3)
  1. QVAR [Suspect]
     Indication: SEASONAL ALLERGY
     Dosage: 320 MICROGRAM DAILY; 2 PUFFS TWICE A DAY
  2. QVAR [Suspect]
     Indication: ASTHMA
  3. ACTIFED [Concomitant]
     Indication: SINUS CONGESTION

REACTIONS (5)
  - Sinus congestion [Not Recovered/Not Resolved]
  - Wheezing [Not Recovered/Not Resolved]
  - Cough [Not Recovered/Not Resolved]
  - Ear pain [Not Recovered/Not Resolved]
  - Insomnia [Not Recovered/Not Resolved]
